FAERS Safety Report 9495756 (Version 1)
Quarter: 2013Q3

REPORT INFORMATION
  Report Type: Spontaneous
  Country: IT (occurrence: IT)
  Receive Date: 20130903
  Receipt Date: 20130903
  Transmission Date: 20140515
  Serious: Yes (Hospitalization, Other)
  Sender: FDA-Public Use
  Company Number: ALCN2013IT004420

PATIENT
  Age: 3 Year
  Sex: Male

DRUGS (3)
  1. TOBRADEX [Suspect]
     Indication: POSTOPERATIVE CARE
     Dosage: UNK, TID
     Route: 047
  2. TOBRADEX [Suspect]
     Dosage: UNK
     Route: 047
  3. PARACETAMOL + CODEINE [Concomitant]
     Indication: POSTOPERATIVE CARE
     Dosage: UNK, TID

REACTIONS (1)
  - Cellulitis orbital [Recovered/Resolved]
